FAERS Safety Report 8229541-6 (Version None)
Quarter: 2012Q1

REPORT INFORMATION
  Report Type: 
  Country: None (occurrence: None)
  Receive Date: 20120322
  Receipt Date: 20120310
  Transmission Date: 20120608
  Serious: Yes (Other)
  Sender: FDA-Public Use
  Company Number: DE-B.I. PHARMACEUTICALS,INC./RIDGEFIELD-2012-DE-00713DE

PATIENT
  Sex: Male

DRUGS (2)
  1. VIRAMUNE [Suspect]
     Dosage: RT: 18-40 TABLETTEN
     Route: 048
     Dates: start: 20120310
  2. PREZISTA [Suspect]
     Dosage: RT: 10-20 TABLETTEN
     Route: 048
     Dates: start: 20120310

REACTIONS (1)
  - SUICIDE ATTEMPT [None]
